FAERS Safety Report 9604685 (Version 3)
Quarter: 2013Q4

REPORT INFORMATION
  Report Type: Spontaneous
  Country: US (occurrence: US)
  Receive Date: 20131008
  Receipt Date: 20131108
  Transmission Date: 20140711
  Serious: No
  Sender: FDA-Public Use
  Company Number: US-PFIZER INC-2013281322

PATIENT
  Sex: Female

DRUGS (1)
  1. XELJANZ [Suspect]
     Dosage: UNK
     Dates: end: 20130928

REACTIONS (4)
  - Drug dose omission [Unknown]
  - Food poisoning [Unknown]
  - Vomiting [Unknown]
  - Dyspnoea [Recovered/Resolved]
